FAERS Safety Report 5952789-8 (Version None)
Quarter: 2008Q4

REPORT INFORMATION
  Report Type: 
  Country: None (occurrence: None)
  Receive Date: 20081114
  Receipt Date: 20081105
  Transmission Date: 20090506
  Serious: Yes (Hospitalization)
  Sender: FDA-Public Use
  Company Number: US-JNJFOC-20081101749

PATIENT
  Sex: Female
  Weight: 52.16 kg

DRUGS (4)
  1. DOXIL [Suspect]
     Indication: OVARIAN CANCER
     Route: 042
  2. ATIVAN [Concomitant]
     Indication: ANXIETY
     Route: 048
  3. IBUPROFEN TABLETS [Concomitant]
     Indication: PAIN
     Route: 048
  4. SENOKOT [Concomitant]
     Indication: CONSTIPATION
     Route: 048

REACTIONS (3)
  - BACK PAIN [None]
  - HEPATIC PAIN [None]
  - PELVIC PAIN [None]
